FAERS Safety Report 11051461 (Version 1)
Quarter: 2015Q2

REPORT INFORMATION
  Report Type: Spontaneous
  Country: FR (occurrence: FR)
  Receive Date: 20150421
  Receipt Date: 20150421
  Transmission Date: 20150821
  Serious: Yes (Hospitalization, Other)
  Sender: FDA-Public Use
  Company Number: FR-ACTAVIS-2015-08282

PATIENT
  Age: 34 Year
  Sex: Female

DRUGS (1)
  1. NICARDIPINE (UNKNOWN) [Suspect]
     Active Substance: NICARDIPINE
     Indication: PREMATURE LABOUR
     Dosage: UNK
     Route: 065

REACTIONS (2)
  - Maternal exposure during pregnancy [Unknown]
  - Pulmonary oedema [Recovered/Resolved]
